FAERS Safety Report 24562537 (Version 3)
Quarter: 2025Q1

REPORT INFORMATION
  Report Type: Spontaneous
  Country: JP (occurrence: JP)
  Receive Date: 20241029
  Receipt Date: 20250217
  Transmission Date: 20250408
  Serious: Yes (Death, Hospitalization)
  Sender: BAYER HEALTHCARE PHARMACEUTICALS INC.
  Company Number: JP-BAYER-2024A152070

PATIENT
  Age: 75 Year
  Sex: Male

DRUGS (3)
  1. XOFIGO [Suspect]
     Active Substance: RADIUM RA-223 DICHLORIDE
     Indication: Hormone-refractory prostate cancer
     Dosage: 55 KBQ/KG, Q4WK,UP TO SIX COURSES
     Route: 042
     Dates: start: 20240815
  2. XOFIGO [Suspect]
     Active Substance: RADIUM RA-223 DICHLORIDE
     Indication: Hormone-refractory prostate cancer
     Dosage: 55 KBQ, Q4WK
     Route: 042
     Dates: start: 20240912
  3. XOFIGO [Suspect]
     Active Substance: RADIUM RA-223 DICHLORIDE
     Indication: Hormone-refractory prostate cancer
     Dosage: 55 KBQ/KG, Q4WK,UP TO SIX COURSES
     Route: 042
     Dates: start: 20241010

REACTIONS (10)
  - Hormone-refractory prostate cancer [Fatal]
  - General physical health deterioration [Fatal]
  - Dyspnoea [Fatal]
  - Pneumonia [Fatal]
  - Disseminated intravascular coagulation [Fatal]
  - Anaemia [Fatal]
  - White blood cell count decreased [Fatal]
  - Platelet count decreased [Fatal]
  - Haematotoxicity [Fatal]
  - Back pain [Fatal]

NARRATIVE: CASE EVENT DATE: 20241001
